FAERS Safety Report 7995597-9 (Version None)
Quarter: 2011Q4

REPORT INFORMATION
  Report Type: 
  Country: None (occurrence: None)
  Receive Date: 20111217
  Receipt Date: 20111217
  Transmission Date: 20120403
  Serious: No
  Sender: FDA-Public Use
  Company Number: None

PATIENT
  Age: 15 Year
  Sex: Female

DRUGS (1)
  1. LEFLUNOMIDE [Suspect]
     Indication: BK VIRUS INFECTION
     Dosage: 10MG DAILY PO
     Route: 048
     Dates: start: 20110308, end: 20110913

REACTIONS (1)
  - ALOPECIA [None]
